FAERS Safety Report 5221210-X (Version None)
Quarter: 2007Q1

REPORT INFORMATION
  Report Type: 
  Country: None (occurrence: None)
  Receive Date: 20070126
  Receipt Date: 20061115
  Transmission Date: 20070707
  Serious: Yes (Other)
  Sender: FDA-Public Use
  Company Number: FR-BOEHRINGER INGELHEIM PHARMACEUTICALS, INC.-2006-FF-01262PF

PATIENT
  Age: 67 Year
  Sex: Male

DRUGS (5)
  1. SPIRIVA [Suspect]
     Indication: CHRONIC OBSTRUCTIVE PULMONARY DISEASE
     Route: 055
  2. VENTODISK [Concomitant]
  3. MIFLONIL [Concomitant]
  4. DESLORATADINE [Concomitant]
  5. AEROMIR [Concomitant]

REACTIONS (2)
  - AGGRESSION [None]
  - BRONCHOSPASM [None]
